FAERS Safety Report 8569607-4 (Version None)
Quarter: 2012Q3

REPORT INFORMATION
  Report Type: 
  Country: None (occurrence: None)
  Receive Date: 20120803
  Receipt Date: 20120411
  Transmission Date: 20120928
  Serious: No
  Sender: FDA-Public Use
  Company Number: US-ABBOTT-12P-163-0924243-00

PATIENT
  Sex: Male
  Weight: 70.37 kg

DRUGS (4)
  1. SIMVASTATIN [Concomitant]
     Indication: PRODUCT USED FOR UNKNOWN INDICATION
  2. NIASPAN [Suspect]
     Indication: BLOOD CHOLESTEROL
     Dates: start: 20030101
  3. DOXAZOSIN MESYLATE [Concomitant]
     Indication: PROSTATOMEGALY
  4. FENASTERIDE [Concomitant]
     Indication: PROSTATOMEGALY

REACTIONS (2)
  - UNEVALUABLE EVENT [None]
  - PLATELET COUNT DECREASED [None]
